FAERS Safety Report 6996590-5 (Version None)
Quarter: 2010Q3

REPORT INFORMATION
  Report Type: 
  Country: None (occurrence: None)
  Receive Date: 20100918
  Receipt Date: 20090630
  Transmission Date: 20110219
  Serious: No
  Sender: FDA-Public Use
  Company Number: US-WYE-H09502309

PATIENT
  Sex: Female
  Weight: 111.23 kg

DRUGS (8)
  1. EFFEXOR XR [Suspect]
     Indication: DEPRESSION
     Dosage: 300 MG, FREQUENCY UNSPECIFIED
     Route: 048
     Dates: start: 20040101, end: 20090521
  2. EFFEXOR XR [Suspect]
     Dosage: UNKNOWN
     Route: 048
     Dates: start: 20090527
  3. CANNABIS [Concomitant]
  4. NORTRIPTYLINE HCL [Concomitant]
  5. DEPAKOTE [Concomitant]
  6. PRISTIQ [Suspect]
     Indication: DEPRESSION
     Dosage: 50 MG, FREQUENCY UNSPECIFIED
     Route: 048
     Dates: start: 20090522, end: 20090501
  7. PRISTIQ [Suspect]
     Dosage: 100 MG, FREQUENCY UNSPECIFIED
     Route: 048
     Dates: start: 20090501
  8. ESTROGEN NOS [Concomitant]

REACTIONS (9)
  - BIPOLAR I DISORDER [None]
  - DEPRESSION [None]
  - DIARRHOEA [None]
  - DIZZINESS [None]
  - DRUG WITHDRAWAL SYNDROME [None]
  - HEADACHE [None]
  - IRRITABILITY [None]
  - SOMNOLENCE [None]
  - VOMITING [None]
